FAERS Safety Report 16371502 (Version 1)
Quarter: 2019Q2

REPORT INFORMATION
  Report Type: Spontaneous
  Country: US (occurrence: US)
  Receive Date: 20190424
  Receipt Date: 20190424
  Transmission Date: 20190711
  Serious: No
  Sender: FDA-Public Use
  Company Number: None

PATIENT
  Age: 65 Year
  Sex: Male

DRUGS (1)
  1. TACROLIMUS. [Suspect]
     Active Substance: TACROLIMUS
     Dates: start: 201809, end: 201903

REACTIONS (2)
  - Dysphemia [None]
  - Tremor [None]

NARRATIVE: CASE EVENT DATE: 20190409
